FAERS Safety Report 14335436 (Version 3)
Quarter: 2018Q2

REPORT INFORMATION
  Report Type: Spontaneous
  Country: US (occurrence: US)
  Receive Date: 20171229
  Receipt Date: 20180619
  Transmission Date: 20180711
  Serious: Yes (Hospitalization)
  Sender: FDA-Public Use
  Company Number: US-009507513-1712USA012203

PATIENT
  Sex: Male

DRUGS (14)
  1. INTRON A [Suspect]
     Active Substance: INTERFERON ALFA-2B
     Indication: REFRACTORY CYTOPENIA WITH UNILINEAGE DYSPLASIA
     Dosage: 0.66 ML, 2 TIMES A WEEK (STRENGHT: 18MIU/3 ML MDV)
     Route: 058
     Dates: start: 201009
  2. ACETAMINOPHEN (+) HYDROCODONE BITARTRATE [Concomitant]
     Active Substance: ACETAMINOPHEN\HYDROCODONE BITARTRATE
  3. INTRON A [Suspect]
     Active Substance: INTERFERON ALFA-2B
     Dosage: 0.66 ML, 2 TIMES A WEEK (STRENGHT: 18MIU/3 ML MDV)
     Route: 058
  4. PREDNISONE. [Concomitant]
     Active Substance: PREDNISONE
  5. CLONAZEPAM. [Concomitant]
     Active Substance: CLONAZEPAM
  6. ONDANSETRON [Concomitant]
     Active Substance: ONDANSETRON
  7. CIPROFLOXACIN HYDROCHLORIDE. [Concomitant]
     Active Substance: CIPROFLOXACIN HYDROCHLORIDE
  8. INTRON A [Suspect]
     Active Substance: INTERFERON ALFA-2B
     Dosage: 0.66 ML, 2 TIMES A WEEK (STRENGHT: 18MIU/3 ML MDV)
     Route: 058
  9. TEMODAR [Concomitant]
     Active Substance: TEMOZOLOMIDE
  10. OMEPRAZOLE. [Concomitant]
     Active Substance: OMEPRAZOLE
  11. METRONIDAZOLE. [Concomitant]
     Active Substance: METRONIDAZOLE
  12. ACETAMINOPHEN (+) OXYCODONE HYDROCHLORIDE [Concomitant]
     Active Substance: ACETAMINOPHEN\OXYCODONE HYDROCHLORIDE
  13. FLUVIRIN NOS [Concomitant]
     Active Substance: INFLUENZA VIRUS VACCINE
  14. RANITIDINE. [Concomitant]
     Active Substance: RANITIDINE

REACTIONS (3)
  - Pain [Not Recovered/Not Resolved]
  - Bone pain [Not Recovered/Not Resolved]
  - Adverse event [Not Recovered/Not Resolved]
